FAERS Safety Report 15772487 (Version 1)
Quarter: 2018Q4

REPORT INFORMATION
  Report Type: Spontaneous
  Country: US (occurrence: US)
  Receive Date: 20181228
  Receipt Date: 20181228
  Transmission Date: 20190205
  Serious: Yes (Death, Life-Threatening, Hospitalization, Other)
  Sender: FDA-Public Use
  Company Number: US-JNJFOC-20181228930

PATIENT
  Age: 55 Year
  Sex: Female

DRUGS (2)
  1. INFLIXIMAB, RECOMBINANT [Suspect]
     Active Substance: INFLIXIMAB
     Indication: NEUROSARCOIDOSIS
     Dosage: TOTAL OF THREE DOSES
     Route: 042
  2. DEXAMETHASONE. [Suspect]
     Active Substance: DEXAMETHASONE
     Indication: NEUROSARCOIDOSIS
     Dosage: TOTAL OF 8MG/DAY OF DEXAMETHASONE FOR NINE MONTHS
     Route: 065

REACTIONS (5)
  - Angiopathy [Fatal]
  - Acute respiratory failure [Fatal]
  - Aspergillus infection [Fatal]
  - Cerebral aspergillosis [Fatal]
  - Brain abscess [Fatal]
